FAERS Safety Report 21111481 (Version 6)
Quarter: 2023Q1

REPORT INFORMATION
  Report Type: Spontaneous
  Country: CA (occurrence: CA)
  Receive Date: 20220721
  Receipt Date: 20230228
  Transmission Date: 20230417
  Serious: Yes (Other)
  Sender: FDA-Public Use
  Company Number: CA-PFIZER INC-202200966583

PATIENT
  Age: 31 Year
  Sex: Male

DRUGS (2)
  1. ABRILADA [Suspect]
     Active Substance: ADALIMUMAB-AFZB
     Indication: Colitis ulcerative
     Dosage: 40 MG, EVERY 2 WEEK
     Route: 058
     Dates: start: 202205
  2. ABRILADA [Suspect]
     Active Substance: ADALIMUMAB-AFZB
     Dosage: 40 MG, EVERY 2 WEEK(PREFILLED PEN)
     Route: 058
     Dates: start: 20220606, end: 2022

REACTIONS (9)
  - Haematochezia [Unknown]
  - Tendonitis [Unknown]
  - Malaise [Unknown]
  - Bowel movement irregularity [Unknown]
  - Hepatic function abnormal [Unknown]
  - Condition aggravated [Not Recovered/Not Resolved]
  - Diarrhoea [Not Recovered/Not Resolved]
  - Frequent bowel movements [Not Recovered/Not Resolved]
  - Drug ineffective [Unknown]

NARRATIVE: CASE EVENT DATE: 20220101
